FAERS Safety Report 25026024 (Version 1)
Quarter: 2025Q1

REPORT INFORMATION
  Report Type: Spontaneous
  Country: US (occurrence: US)
  Receive Date: 20250301
  Receipt Date: 20250301
  Transmission Date: 20250409
  Serious: No
  Sender: AUROBINDO
  Company Number: US-AUROBINDO-AUR-APL-2024-026053

PATIENT
  Age: 30 Year
  Sex: Male
  Weight: 86.18 kg

DRUGS (5)
  1. AMOXICILLIN AND CLAVULANATE POTASSIUM [Suspect]
     Active Substance: AMOXICILLIN\CLAVULANATE POTASSIUM
     Indication: Bacterial prostatitis
     Dosage: UNK UNK, TWO TIMES A DAY
     Route: 065
     Dates: start: 202010
  2. AMOXICILLIN AND CLAVULANATE POTASSIUM [Suspect]
     Active Substance: AMOXICILLIN\CLAVULANATE POTASSIUM
     Indication: Infection
     Dosage: UNK UNK, TWO TIMES A DAY
     Route: 065
     Dates: start: 202011
  3. SULFAMETHOXAZOLE\TRIMETHOPRIM [Suspect]
     Active Substance: SULFAMETHOXAZOLE\TRIMETHOPRIM
     Indication: Bacterial prostatitis
     Dosage: UNK UNK, TWO TIMES A DAY
     Route: 065
     Dates: start: 202010
  4. SULFAMETHOXAZOLE\TRIMETHOPRIM [Suspect]
     Active Substance: SULFAMETHOXAZOLE\TRIMETHOPRIM
     Indication: Infection
  5. LEVOTHYROXINE [Concomitant]
     Active Substance: LEVOTHYROXINE
     Indication: Thyroid disorder
     Route: 065

REACTIONS (12)
  - Ear pain [Not Recovered/Not Resolved]
  - Abdominal pain [Not Recovered/Not Resolved]
  - Abdominal pain upper [Not Recovered/Not Resolved]
  - Alopecia [Not Recovered/Not Resolved]
  - Adverse event [Not Recovered/Not Resolved]
  - Pain in extremity [Not Recovered/Not Resolved]
  - Hunger [Not Recovered/Not Resolved]
  - Increased appetite [Not Recovered/Not Resolved]
  - Depression [Not Recovered/Not Resolved]
  - Proctalgia [Not Recovered/Not Resolved]
  - Anxiety [Not Recovered/Not Resolved]
  - Therapy cessation [Unknown]

NARRATIVE: CASE EVENT DATE: 20201001
